FAERS Safety Report 7957182-4 (Version None)
Quarter: 2011Q4

REPORT INFORMATION
  Report Type: 
  Country: None (occurrence: None)
  Receive Date: 20111205
  Receipt Date: 20111129
  Transmission Date: 20120403
  Serious: Yes (Other)
  Sender: FDA-Public Use
  Company Number: AR-ROCHE-GNE321598

PATIENT
  Sex: Male

DRUGS (1)
  1. LUCENTIS [Suspect]
     Indication: VISUAL ACUITY REDUCED
     Dosage: 1 DF, Q3M
     Route: 050
     Dates: start: 20100101

REACTIONS (4)
  - FALL [None]
  - DRUG INEFFECTIVE [None]
  - VISION BLURRED [None]
  - VISUAL ACUITY REDUCED [None]
